FAERS Safety Report 5774535-3 (Version None)
Quarter: 2008Q2

REPORT INFORMATION
  Report Type: 
  Country: None (occurrence: None)
  Receive Date: 20080616
  Receipt Date: 20080606
  Transmission Date: 20081010
  Serious: Yes (Life-Threatening)
  Sender: FDA-Public Use
  Company Number: JP-PFIZER INC-2008048884

PATIENT
  Age: 50 Year
  Sex: Female

DRUGS (2)
  1. CELECOX [Suspect]
     Indication: OSTEOARTHRITIS
     Dosage: DAILY DOSE:200MG
     Route: 048
  2. ALL OTHER THERAPEUTIC PRODUCTS [Concomitant]

REACTIONS (2)
  - DYSPNOEA [None]
  - WHEEZING [None]
